FAERS Safety Report 19697720 (Version 2)
Quarter: 2022Q3

REPORT INFORMATION
  Report Type: Spontaneous
  Country: JP (occurrence: JP)
  Receive Date: 20210813
  Receipt Date: 20220714
  Transmission Date: 20221026
  Serious: Yes (Hospitalization, Other)
  Sender: FDA-Public Use
  Company Number: JP-GLAXOSMITHKLINE-JP2021JPN168458

PATIENT

DRUGS (18)
  1. BENLYSTA [Suspect]
     Active Substance: BELIMUMAB
     Indication: Systemic lupus erythematosus
     Dosage: 10 MG/KG, ONCE EVERY 4 WEEKS
     Route: 041
     Dates: start: 20180628, end: 20180726
  2. BENLYSTA [Suspect]
     Active Substance: BELIMUMAB
     Dosage: 10 MG/KG, ONCE EVERY 2 WEEKS
     Route: 041
     Dates: start: 20190214, end: 20190408
  3. BENLYSTA [Suspect]
     Active Substance: BELIMUMAB
     Dosage: UNK
  4. BENLYSTA [Suspect]
     Active Substance: BELIMUMAB
     Indication: Systemic lupus erythematosus
     Dosage: 200 MG, WEEKLY
     Route: 058
     Dates: start: 20190509, end: 20190701
  5. PREDNISOLONE [Concomitant]
     Active Substance: PREDNISOLONE
     Indication: Systemic lupus erythematosus
     Dosage: 11 MG
     Dates: end: 20181121
  6. PREDNISOLONE [Concomitant]
     Active Substance: PREDNISOLONE
     Dosage: 10.5 MG
     Dates: start: 20181122
  7. PLAQUENIL [Concomitant]
     Active Substance: HYDROXYCHLOROQUINE SULFATE
     Indication: Systemic lupus erythematosus
  8. EDOXABAN TOSYLATE [Concomitant]
     Active Substance: EDOXABAN TOSYLATE
  9. SULFAMETHOXAZOLE\TRIMETHOPRIM [Concomitant]
     Active Substance: SULFAMETHOXAZOLE\TRIMETHOPRIM
     Indication: Prophylaxis
  10. ELDECALCITOL [Concomitant]
     Active Substance: ELDECALCITOL
     Indication: Prophylaxis
  11. TRYPTANOL (AMITRIPTYLINE HYDROCHLORIDE) [Concomitant]
  12. ZOLPIDEM TARTRATE [Concomitant]
     Active Substance: ZOLPIDEM TARTRATE
  13. ETIZOLAM [Concomitant]
     Active Substance: ETIZOLAM
  14. MAXALT [Concomitant]
     Active Substance: RIZATRIPTAN BENZOATE
  15. TACROLIMUS [Concomitant]
     Active Substance: TACROLIMUS
  16. RABEPRAZOLE SODIUM [Concomitant]
     Active Substance: RABEPRAZOLE SODIUM
     Indication: Prophylaxis
  17. REBAMIPIDE [Concomitant]
     Active Substance: REBAMIPIDE
     Indication: Prophylaxis
  18. PROGRAF [Concomitant]
     Active Substance: TACROLIMUS
     Indication: Systemic lupus erythematosus

REACTIONS (4)
  - Genital haemorrhage [Recovered/Resolved]
  - Genital haemorrhage [Recovered/Resolved]
  - Adverse event [Recovered/Resolved]
  - Adenomyosis [Unknown]

NARRATIVE: CASE EVENT DATE: 20191215
